FAERS Safety Report 16825783 (Version 2)
Quarter: 2019Q3

REPORT INFORMATION
  Report Type: Spontaneous
  Country: US (occurrence: US)
  Receive Date: 20190919
  Receipt Date: 20190930
  Transmission Date: 20191005
  Serious: Yes (Life-Threatening, Hospitalization, Other)
  Sender: FDA-Public Use
  Company Number: US-AUROBINDO-AUR-APL-2019-059140

PATIENT
  Age: 29 Year
  Sex: Female

DRUGS (2)
  1. LOPERAMIDE 2MG [Suspect]
     Active Substance: LOPERAMIDE
     Indication: DIARRHOEA
  2. LOPERAMIDE 2MG [Suspect]
     Active Substance: LOPERAMIDE
     Indication: ABDOMINAL PAIN
     Dosage: 100 MILLIGRAM, DAILY (MORE THAN 200 MG (100 PILLS)
     Route: 065

REACTIONS (12)
  - Drug abuse [Recovered/Resolved]
  - Vomiting [Unknown]
  - Bile acid malabsorption [Unknown]
  - Presyncope [Unknown]
  - Torsade de pointes [Recovered/Resolved]
  - Abdominal pain [Unknown]
  - Ventricular tachycardia [Recovered/Resolved]
  - Electrocardiogram QT prolonged [Recovered/Resolved]
  - Intentional overdose [Recovered/Resolved]
  - Dizziness [Unknown]
  - Palpitations [Unknown]
  - Nausea [Unknown]
